FAERS Safety Report 9520758 (Version 1)
Quarter: 2013Q1

REPORT INFORMATION
  Report Type: Spontaneous
  Country: US (occurrence: None)
  Receive Date: 20130305
  Receipt Date: 20130305
  Transmission Date: 20140127
  Serious: Yes (Other)
  Sender: FDA-Public Use
  Company Number: 163-21880-12070498

PATIENT
  Age: 69 Year
  Sex: Female
  Weight: 90.72 kg

DRUGS (3)
  1. REVLIMID (LENALIDOMIDE) (15 MILLIGRAM, CAPSULES) [Suspect]
     Indication: PLASMA CELL MYELOMA
     Dosage: 15 MG,  1 IN 1 D,  PO
     Route: 048
     Dates: start: 20120127, end: 20120703
  2. ASPIRIN (UNKNOWN) [Concomitant]
  3. DEXAMETHASONE (DEXAMETHASONE) [Concomitant]

REACTIONS (1)
  - Plasma cell myeloma [None]
